FAERS Safety Report 15907622 (Version 1)
Quarter: 2019Q1

REPORT INFORMATION
  Report Type: Spontaneous
  Country: US (occurrence: US)
  Receive Date: 20190204
  Receipt Date: 20190204
  Transmission Date: 20190417
  Serious: No
  Sender: FDA-Public Use
  Company Number: US-SA-2019SA029416

PATIENT
  Age: 8 Year
  Sex: Female
  Weight: 23.58 kg

DRUGS (4)
  1. CLARITIN [CLARITHROMYCIN] [Concomitant]
     Active Substance: CLARITHROMYCIN
     Dosage: 10 MG, PRN
     Route: 048
     Dates: start: 20190111
  2. PULMICORT TURBUHALER [Concomitant]
     Active Substance: BUDESONIDE
     Dosage: 0.25MG/2ML AMP UL-NEB1 DOSE, BID
     Route: 065
     Dates: start: 20190111
  3. MIRALAX [Concomitant]
     Active Substance: POLYETHYLENE GLYCOL 3350
     Dosage: 17 G DOSE POWDER
     Route: 048
     Dates: start: 20190111
  4. LUMIZYME [Suspect]
     Active Substance: ALGLUCOSIDASE ALFA
     Indication: GAUCHER^S DISEASE
     Dosage: 1000 MG, QOW
     Route: 041
     Dates: start: 20190111

REACTIONS (1)
  - Influenza [Unknown]
